FAERS Safety Report 8100197-6 (Version None)
Quarter: 2012Q1

REPORT INFORMATION
  Report Type: 
  Country: None (occurrence: None)
  Receive Date: 20120129
  Receipt Date: 20111117
  Transmission Date: 20120608
  Serious: No
  Sender: FDA-Public Use
  Company Number: US-ABBOTT-11P-163-0852355-00

PATIENT
  Age: 58 Year
  Sex: Male

DRUGS (5)
  1. HUMIRA [Suspect]
     Indication: CROHN'S DISEASE
     Dosage: 2 INJECTIONS DAY 1
     Route: 058
     Dates: start: 20110828
  2. MERCAPTOPURINE [Concomitant]
     Indication: PRODUCT USED FOR UNKNOWN INDICATION
     Dosage: ONE DAILY FOR A YEAR
  3. HUMIRA [Suspect]
     Dosage: 2 INJECTIONS DAY 2
     Route: 058
  4. LORAZEPAM [Concomitant]
     Indication: PRODUCT USED FOR UNKNOWN INDICATION
     Dosage: 1 MG - AS NEEDED FOR A YEAR
  5. MELOXICAM [Concomitant]
     Indication: ARTHRALGIA
     Dosage: 7.5 MG - FOR YEARS

REACTIONS (7)
  - CHOKING SENSATION [None]
  - PAIN [None]
  - ARTHROPOD BITE [None]
  - EXCORIATION [None]
  - HOT FLUSH [None]
  - FLUSHING [None]
  - DEPRESSION [None]
